FAERS Safety Report 10078593 (Version 2)
Quarter: 2014Q3

REPORT INFORMATION
  Report Type: Report from Study
  Country: JP (occurrence: JP)
  Receive Date: 20140415
  Receipt Date: 20140822
  Transmission Date: 20150326
  Serious: Yes (Death, Hospitalization)
  Sender: FDA-Public Use
  Company Number: JP-ELI_LILLY_AND_COMPANY-JP201404004174

PATIENT
  Age: 73 Year
  Sex: Male

DRUGS (7)
  1. VITAMIN B12 [Concomitant]
     Active Substance: CYANOCOBALAMIN
     Indication: PROPHYLAXIS
     Dosage: 1 MG, EVERY 9 WEEKS
     Route: 030
     Dates: start: 20131118, end: 20140317
  2. CARBOPLATIN. [Suspect]
     Active Substance: CARBOPLATIN
     Indication: NON-SMALL CELL LUNG CANCER
     Dosage: 460 MG/M2, EVERY 21 DAYS
     Route: 042
     Dates: start: 20131211, end: 20140106
  3. CARBOPLATIN. [Suspect]
     Active Substance: CARBOPLATIN
     Dosage: 350 MG/M2, EVERY 21 DAYS
     Route: 042
     Dates: start: 20140107, end: 20140312
  4. PEMETREXED [Suspect]
     Active Substance: PEMETREXED
     Dosage: 400 MG/M2, EVERY 21 DAYS
     Route: 042
     Dates: start: 20140107, end: 20140312
  5. BEVACIZUMAB [Suspect]
     Active Substance: BEVACIZUMAB
     Indication: NON-SMALL CELL LUNG CANCER
     Dosage: 540 MG/M2, EVERY 21 DAYS
     Route: 042
     Dates: start: 20131211, end: 20140312
  6. PEMETREXED [Suspect]
     Active Substance: PEMETREXED
     Indication: NON-SMALL CELL LUNG CANCER
     Dosage: 500 MG/M2, EVERY 21 DAYS
     Route: 042
     Dates: start: 20131211, end: 20140106
  7. PANVITAN                           /00466101/ [Concomitant]
     Indication: PROPHYLAXIS
     Dosage: 1 G, QD
     Route: 065
     Dates: start: 20131118, end: 201403

REACTIONS (2)
  - Pulmonary haemorrhage [Fatal]
  - Pneumonia [Fatal]

NARRATIVE: CASE EVENT DATE: 20140325
